FAERS Safety Report 9816572 (Version 2)
Quarter: 2014Q1

REPORT INFORMATION
  Report Type: Spontaneous
  Country: IT (occurrence: IT)
  Receive Date: 20140114
  Receipt Date: 20140120
  Transmission Date: 20141002
  Serious: Yes (Other)
  Sender: FDA-Public Use
  Company Number: IT-ELI_LILLY_AND_COMPANY-IT201401002016

PATIENT
  Age: 65 Year
  Sex: Female

DRUGS (5)
  1. GEMCITABINE HYDROCHLORIDE [Suspect]
     Indication: PANCREATIC CARCINOMA
     Dosage: 1000 MG/M2, CYCLICAL
  2. INSULIN [Concomitant]
  3. ALDACTONE [Concomitant]
     Dosage: 100 MG, UNKNOWN
  4. DILATREND [Concomitant]
  5. CARDIOASPIRIN [Concomitant]

REACTIONS (6)
  - Capillary leak syndrome [Recovered/Resolved]
  - Pulmonary hypertension [Recovering/Resolving]
  - Generalised oedema [Recovered/Resolved]
  - Capillary leak syndrome [Recovered/Resolved]
  - Pulmonary hypertension [Recovered/Resolved]
  - Renal failure [Unknown]
